FAERS Safety Report 8085420-9 (Version None)
Quarter: 2012Q1

REPORT INFORMATION
  Report Type: 
  Country: None (occurrence: None)
  Receive Date: 20120128
  Receipt Date: 20110413
  Transmission Date: 20120608
  Serious: No
  Sender: FDA-Public Use
  Company Number: US-ABBOTT-11P-163-0696448-00

PATIENT
  Age: 38 Year
  Sex: Female

DRUGS (13)
  1. MULTI-VITAMIN [Concomitant]
     Indication: PRODUCT USED FOR UNKNOWN INDICATION
  2. XANAX [Concomitant]
     Indication: ANXIETY
  3. FLEXERIL [Concomitant]
     Indication: PRODUCT USED FOR UNKNOWN INDICATION
  4. NEXIUM [Concomitant]
     Indication: GASTROOESOPHAGEAL REFLUX DISEASE
  5. CELEXA [Concomitant]
     Indication: PRODUCT USED FOR UNKNOWN INDICATION
  6. ZYRTEC [Concomitant]
     Indication: HYPERSENSITIVITY
  7. TAPAZOLE [Concomitant]
     Indication: HYPERTHYROIDISM
  8. BIRTH CONTROL PILLS [Concomitant]
     Indication: PRODUCT USED FOR UNKNOWN INDICATION
  9. ALBUTEROL [Concomitant]
     Indication: ASTHMA
     Route: 055
  10. HUMIRA [Suspect]
     Indication: ANKYLOSING SPONDYLITIS
     Dates: start: 20101227
  11. PRAVACHOL [Concomitant]
     Indication: BLOOD CHOLESTEROL INCREASED
  12. DARVOCET [Concomitant]
     Indication: PAIN
  13. NUVIGIL [Concomitant]
     Indication: INSOMNIA
     Dates: end: 20110301

REACTIONS (4)
  - RASH ERYTHEMATOUS [None]
  - FATIGUE [None]
  - INJECTION SITE HAEMATOMA [None]
  - ANKYLOSING SPONDYLITIS [None]
